FAERS Safety Report 6698166-6 (Version None)
Quarter: 2010Q2

REPORT INFORMATION
  Report Type: 
  Country: None (occurrence: None)
  Receive Date: 20100427
  Receipt Date: 20100421
  Transmission Date: 20101027
  Serious: Yes (Disabling)
  Sender: FDA-Public Use
  Company Number: DK-BRACCO-000034

PATIENT
  Sex: Female
  Weight: 65 kg

DRUGS (13)
  1. NEORECORMON [Concomitant]
     Route: 042
  2. VEPICOMBIN [Concomitant]
     Route: 048
  3. C-VITAMIN [Concomitant]
     Route: 048
  4. CORODIL [Concomitant]
     Route: 048
  5. FOLINSYRE [Concomitant]
     Route: 048
  6. SIMVASTATIN [Concomitant]
     Route: 048
  7. IPREN [Concomitant]
     Route: 048
  8. LONGOVITAL [Concomitant]
  9. WARFARIN SODIUM [Concomitant]
     Route: 048
  10. NEXIUM [Concomitant]
     Route: 048
  11. MANDOLGIN [Concomitant]
     Route: 048
  12. BUMEX [Concomitant]
     Route: 048
  13. CONTRAST MEDIA [Suspect]
     Indication: NUCLEAR MAGNETIC RESONANCE IMAGING
     Route: 042
     Dates: start: 20060407, end: 20060407

REACTIONS (1)
  - NEPHROGENIC SYSTEMIC FIBROSIS [None]
